FAERS Safety Report 9281457 (Version 1)
Quarter: 2013Q2

REPORT INFORMATION
  Report Type: Spontaneous
  Country: US (occurrence: US)
  Receive Date: 20130509
  Receipt Date: 20130509
  Transmission Date: 20140414
  Serious: No
  Sender: FDA-Public Use
  Company Number: US-ASTRAZENECA-2013SE30117

PATIENT
  Sex: Female

DRUGS (1)
  1. ARIMIDEX [Suspect]
     Dosage: GENERIC
     Route: 065

REACTIONS (1)
  - Neutropenia [Unknown]
